FAERS Safety Report 9780172 (Version 2)
Quarter: 2013Q4

REPORT INFORMATION
  Report Type: Spontaneous
  Country: US (occurrence: US)
  Receive Date: 20131223
  Receipt Date: 20131223
  Transmission Date: 20140711
  Serious: Yes (Hospitalization)
  Sender: FDA-Public Use
  Company Number: PHEH2007US03235

PATIENT
  Age: 61 Year
  Sex: Female
  Weight: 67.12 kg

DRUGS (3)
  1. GLEEVEC [Suspect]
     Indication: CHRONIC MYELOID LEUKAEMIA
     Dosage: 400 MG, DAILY
     Route: 048
     Dates: start: 200701, end: 200703
  2. SPRYCEL//DASATINIB [Suspect]
     Indication: CHRONIC MYELOID LEUKAEMIA
     Dosage: 100 MG, DAILY
  3. POLYETHYLENE GLYCOL [Concomitant]
     Indication: CONSTIPATION
     Dosage: UNK UKN, UNK

REACTIONS (11)
  - Pneumothorax [Unknown]
  - Respiratory disorder [Unknown]
  - Effusion [Unknown]
  - Hair texture abnormal [Unknown]
  - Pityriasis rosea [Recovered/Resolved]
  - Rash papular [Recovered/Resolved]
  - Dry skin [Recovered/Resolved]
  - Eye haemorrhage [Unknown]
  - Dry mouth [Unknown]
  - Oedema [Unknown]
  - Dermatitis allergic [Unknown]
